FAERS Safety Report 8544815 (Version 7)
Quarter: 2013Q4

REPORT INFORMATION
  Report Type: Spontaneous
  Country: US (occurrence: US)
  Receive Date: 20120503
  Receipt Date: 20131122
  Transmission Date: 20140711
  Serious: Yes (Hospitalization)
  Sender: FDA-Public Use
  Company Number: US-PFIZER INC-2012106208

PATIENT
  Age: 66 Year
  Sex: Male

DRUGS (4)
  1. XALKORI [Suspect]
     Indication: LUNG NEOPLASM MALIGNANT
     Dosage: 250 MG, 2X/DAY
     Route: 048
     Dates: start: 20120403
  2. XALKORI [Suspect]
     Dosage: 250 MG, 2X/DAY
     Dates: start: 20120413
  3. XALKORI [Suspect]
     Dosage: 250 MG, 2X/DAY
     Route: 048
     Dates: start: 201204
  4. XALKORI [Suspect]
     Dosage: 250 MG, 2X/DAY
     Route: 048
     Dates: start: 201212

REACTIONS (13)
  - Pneumonia [Unknown]
  - Paraesthesia [Not Recovered/Not Resolved]
  - Diarrhoea [Unknown]
  - Dizziness [Unknown]
  - Vision blurred [Recovering/Resolving]
  - Dysgeusia [Recovering/Resolving]
  - Hypoaesthesia [Recovering/Resolving]
  - Sensory disturbance [Recovering/Resolving]
  - Radiation pneumonitis [Recovering/Resolving]
  - Constipation [Recovering/Resolving]
  - Oedema peripheral [Recovering/Resolving]
  - Disease progression [Unknown]
  - Lung neoplasm malignant [Unknown]
